FAERS Safety Report 13717504 (Version 2)
Quarter: 2017Q3

REPORT INFORMATION
  Report Type: Spontaneous
  Country: US (occurrence: US)
  Receive Date: 20170705
  Receipt Date: 20170710
  Transmission Date: 20171127
  Serious: Yes (Hospitalization, Other)
  Sender: FDA-Public Use
  Company Number: US-JNJFOC-20170625568

PATIENT
  Age: 59 Year
  Sex: Female

DRUGS (8)
  1. CELEBREX [Concomitant]
     Active Substance: CELECOXIB
     Indication: OSTEOPENIA
     Route: 048
     Dates: start: 2017
  2. FENTANYL. [Suspect]
     Active Substance: FENTANYL
     Indication: PAIN
     Route: 062
     Dates: start: 2009
  3. GABAPENTIN. [Concomitant]
     Active Substance: GABAPENTIN
     Indication: PAIN
     Route: 048
     Dates: start: 2008
  4. MORPHINE [Concomitant]
     Active Substance: MORPHINE
     Indication: PAIN
     Route: 048
     Dates: start: 2013
  5. METHOCARBAMOL. [Concomitant]
     Active Substance: METHOCARBAMOL
     Indication: MUSCLE RELAXANT THERAPY
     Route: 048
  6. ADVAIR HFA [Concomitant]
     Active Substance: FLUTICASONE PROPIONATE\SALMETEROL XINAFOATE
     Indication: ASTHMA
     Route: 048
     Dates: start: 2006
  7. VITAMIN D [Concomitant]
     Active Substance: CHOLECALCIFEROL
     Indication: VITAMIN D DEFICIENCY
     Route: 048
     Dates: start: 201704
  8. VENTOLIN [Concomitant]
     Active Substance: ALBUTEROL SULFATE
     Indication: ASTHMA
     Route: 048
     Dates: start: 2006

REACTIONS (21)
  - Fall [Unknown]
  - Gastrointestinal infection [Unknown]
  - Blood cholesterol increased [Not Recovered/Not Resolved]
  - Cerebrovascular accident [Unknown]
  - Headache [Not Recovered/Not Resolved]
  - Dizziness [Not Recovered/Not Resolved]
  - Expired product administered [Unknown]
  - Bedridden [Not Recovered/Not Resolved]
  - Vomiting [Not Recovered/Not Resolved]
  - Drug ineffective [Unknown]
  - Coma [Recovered/Resolved]
  - Rotator cuff syndrome [Unknown]
  - Chills [Not Recovered/Not Resolved]
  - Withdrawal syndrome [Not Recovered/Not Resolved]
  - Confusional state [Not Recovered/Not Resolved]
  - Paralysis [Unknown]
  - Hot flush [Not Recovered/Not Resolved]
  - Off label use [Unknown]
  - Diabetes mellitus [Not Recovered/Not Resolved]
  - Nerve compression [Not Recovered/Not Resolved]
  - Insomnia [Not Recovered/Not Resolved]

NARRATIVE: CASE EVENT DATE: 2009
